FAERS Safety Report 9897510 (Version 3)
Quarter: 2014Q4

REPORT INFORMATION
  Report Type: Spontaneous
  Country: US (occurrence: US)
  Receive Date: 20140214
  Receipt Date: 20141119
  Transmission Date: 20150529
  Serious: Yes (Other)
  Sender: FDA-Public Use
  Company Number: US-BAYER-2014-023560

PATIENT
  Age: 30 Year
  Sex: Female

DRUGS (1)
  1. MIRENA [Suspect]
     Active Substance: LEVONORGESTREL
     Indication: CONTRACEPTION
     Dosage: 20 MCG/24HR, CONT
     Route: 015
     Dates: start: 20110517, end: 20130729

REACTIONS (7)
  - Medical device discomfort [None]
  - Scar [None]
  - Injury [None]
  - Medical device pain [None]
  - Device failure [None]
  - Embedded device [None]
  - Procedural pain [None]

NARRATIVE: CASE EVENT DATE: 20130729
